FAERS Safety Report 5335903-7 (Version None)
Quarter: 2007Q1

REPORT INFORMATION
  Report Type: 
  Country: None (occurrence: None)
  Receive Date: 20070301
  Receipt Date: 20061013
  Transmission Date: 20070707
  Serious: Yes (Hospitalization, Other)
  Sender: FDA-Public Use
  Company Number: 2006126435

PATIENT
  Age: 26 Year
  Sex: Female

DRUGS (1)
  1. RELPAX [Suspect]

REACTIONS (1)
  - CEREBRAL HAEMORRHAGE [None]
